FAERS Safety Report 4821870-9 (Version None)
Quarter: 2005Q4

REPORT INFORMATION
  Report Type: 
  Country: None (occurrence: None)
  Receive Date: 20051102
  Receipt Date: 20051013
  Transmission Date: 20060501
  Serious: Yes (Other)
  Sender: FDA-Public Use
  Company Number: CA_051008869

PATIENT
  Age: 15 Year
  Sex: Male

DRUGS (2)
  1. STRATTERA [Suspect]
     Indication: ATTENTION DEFICIT/HYPERACTIVITY DISORDER
     Dosage: 60 MG DAY
     Dates: start: 20050701
  2. RANITIDINE [Concomitant]

REACTIONS (3)
  - ANTISOCIAL BEHAVIOUR [None]
  - DEPRESSION [None]
  - SUICIDAL IDEATION [None]
